FAERS Safety Report 18641653 (Version 3)
Quarter: 2021Q1

REPORT INFORMATION
  Report Type: Spontaneous
  Country: US (occurrence: RU)
  Receive Date: 20201221
  Receipt Date: 20210107
  Transmission Date: 20210419
  Serious: Yes (Hospitalization)
  Sender: FDA-Public Use
  Company Number: RU-SA-2020SA349297

PATIENT

DRUGS (2)
  1. DUPIXENT [Suspect]
     Active Substance: DUPILUMAB
     Indication: DERMATITIS ATOPIC
     Dosage: 600 MG, 1X
     Route: 058
     Dates: start: 20201012, end: 20201012
  2. DUPIXENT [Suspect]
     Active Substance: DUPILUMAB
     Indication: ASTHMA
     Dosage: 300 MG, QOW
     Route: 058
     Dates: start: 20201026, end: 20201116

REACTIONS (11)
  - Pain in extremity [Unknown]
  - Loeffler^s syndrome [Unknown]
  - Dry skin [Unknown]
  - Skin exfoliation [Unknown]
  - Abdominal pain [Not Recovered/Not Resolved]
  - Asthenia [Recovered/Resolved]
  - Limb discomfort [Unknown]
  - Sinus arrhythmia [Unknown]
  - Eosinophilia [Unknown]
  - Mobility decreased [Unknown]
  - Lethargy [Recovered/Resolved]

NARRATIVE: CASE EVENT DATE: 2020
